FAERS Safety Report 8441405 (Version 5)
Quarter: 2014Q1

REPORT INFORMATION
  Report Type: Spontaneous
  Country: US (occurrence: US)
  Receive Date: 20120305
  Receipt Date: 20140204
  Transmission Date: 20141002
  Serious: Yes (Hospitalization)
  Sender: FDA-Public Use
  Company Number: US-GLAXOSMITHKLINE-A0932407A

PATIENT
  Age: 68 Year
  Sex: Female
  Weight: 68.2 kg

DRUGS (1)
  1. AVANDIA [Suspect]
     Indication: DIABETES MELLITUS
     Dosage: 4MG PER DAY
     Route: 048
     Dates: start: 200305, end: 200508

REACTIONS (7)
  - Cerebrovascular accident [Unknown]
  - Monoplegia [Unknown]
  - Aortic valve disease [Unknown]
  - Cardiovascular disorder [Unknown]
  - Amnesia [Unknown]
  - Myocardial infarction [Unknown]
  - Cardiac failure congestive [Unknown]
